FAERS Safety Report 16764604 (Version 1)
Quarter: 2019Q3

REPORT INFORMATION
  Report Type: Spontaneous
  Country: BR (occurrence: BR)
  Receive Date: 20190712
  Receipt Date: 20190712
  Transmission Date: 20191005
  Serious: Yes (Congenital Anomaly)
  Sender: FDA-Public Use
  Company Number: None

PATIENT
  Age: 3 Day
  Sex: Male
  Weight: 2.91 kg

DRUGS (2)
  1. RALTEGRAVIR POTASSIUM (RALTEGRAVIR POTASSIUM) TABLET [Suspect]
     Active Substance: RALTEGRAVIR POTASSIUM
     Indication: INFECTION PROPHYLAXIS
     Route: 064
  2. LAMIVUDINE (+) ZIDOVUDINE (LAMIVUDINE, ZIDOVUDINE) [Suspect]
     Active Substance: LAMIVUDINE\ZIDOVUDINE
     Indication: PROPHYLAXIS AGAINST HIV INFECTION
     Route: 064

REACTIONS (3)
  - Maternal drugs affecting foetus [None]
  - Spina bifida occulta [None]
  - Congenital skin dimples [None]

NARRATIVE: CASE EVENT DATE: 2017
